FAERS Safety Report 9440800 (Version 1)
Quarter: 2013Q3

REPORT INFORMATION
  Report Type: Spontaneous
  Country: DK (occurrence: DK)
  Receive Date: 20130805
  Receipt Date: 20130805
  Transmission Date: 20140515
  Serious: Yes (Other)
  Sender: FDA-Public Use
  Company Number: DK-ELI_LILLY_AND_COMPANY-DK201307009403

PATIENT
  Age: 80 Year
  Sex: Female

DRUGS (2)
  1. FORSTEO [Suspect]
     Indication: OSTEOPOROSIS
     Dosage: 20 UG, UNKNOWN
     Route: 058
     Dates: start: 201301
  2. ALENDRONAT [Suspect]
     Indication: OSTEOPOROSIS
     Dosage: 70 MG, WEEKLY (1/W)
     Route: 048
     Dates: start: 2008, end: 2012

REACTIONS (1)
  - Osteonecrosis of jaw [Not Recovered/Not Resolved]
